FAERS Safety Report 14925739 (Version 3)
Quarter: 2020Q3

REPORT INFORMATION
  Report Type: Other
  Country: JP (occurrence: JP)
  Receive Date: 20180522
  Receipt Date: 20200916
  Transmission Date: 20201102
  Serious: Yes (Other)
  Sender: FDA-Public Use
  Company Number: JP-ROCHE-2127769

PATIENT
  Age: 68 Year
  Sex: Male

DRUGS (4)
  1. PEMETREXED SODIUM HYDRATE [Concomitant]
     Active Substance: PEMETREXED
     Dates: start: 20120510, end: 20130919
  2. BEVACIZUMAB. [Suspect]
     Active Substance: BEVACIZUMAB
     Indication: NON-SMALL CELL LUNG CANCER
     Route: 041
     Dates: start: 20120510, end: 20141016
  3. ZOLEDRONIC ACID [Suspect]
     Active Substance: ZOLEDRONIC ACID
     Indication: METASTASES TO BONE
     Dosage: BRAND NAME: ZOMETA
     Route: 042
     Dates: start: 20120802, end: 20141113
  4. DOCETAXEL. [Concomitant]
     Active Substance: DOCETAXEL

REACTIONS (4)
  - Infection [Unknown]
  - Osteomyelitis [Not Recovered/Not Resolved]
  - General physical health deterioration [Unknown]
  - Osteonecrosis of jaw [Recovered/Resolved]

NARRATIVE: CASE EVENT DATE: 20141113
